FAERS Safety Report 15177642 (Version 1)
Quarter: 2018Q3

REPORT INFORMATION
  Report Type: Report from Study
  Country: US (occurrence: US)
  Receive Date: 20180720
  Receipt Date: 20180720
  Transmission Date: 20181010
  Serious: No
  Sender: FDA-Public Use
  Company Number: US-AMGEN-USASL2018085061

PATIENT
  Age: 68 Year
  Sex: Female

DRUGS (1)
  1. REPATHA [Suspect]
     Active Substance: EVOLOCUMAB
     Indication: BLOOD CHOLESTEROL INCREASED
     Dosage: 140 MG, Q2WK
     Route: 065
     Dates: start: 20180530

REACTIONS (12)
  - Sleep disorder due to a general medical condition [Unknown]
  - Limb discomfort [Unknown]
  - Injection site pain [Unknown]
  - Injection site bruising [Unknown]
  - Pain in extremity [Unknown]
  - Respiratory disorder [Unknown]
  - Back pain [Unknown]
  - Feeling abnormal [Unknown]
  - Dry throat [Unknown]
  - Injection site haemorrhage [Unknown]
  - Nausea [Unknown]
  - Pain [Unknown]

NARRATIVE: CASE EVENT DATE: 20180530
